FAERS Safety Report 4876130-7 (Version None)
Quarter: 2006Q1

REPORT INFORMATION
  Report Type: 
  Country: None (occurrence: None)
  Receive Date: 20060110
  Receipt Date: 20050301
  Transmission Date: 20060701
  Serious: No
  Sender: FDA-Public Use
  Company Number: US-GLAXOSMITHKLINE-A0547690A

PATIENT
  Age: 57 Year
  Sex: Male

DRUGS (1)
  1. ACLOVATE OINTMENT [Suspect]
     Indication: CHAPPED LIPS
     Dates: start: 20050217, end: 20050228

REACTIONS (1)
  - PARAESTHESIA ORAL [None]
